FAERS Safety Report 15975298 (Version 1)
Quarter: 2019Q1

REPORT INFORMATION
  Report Type: Spontaneous
  Country: FR (occurrence: FR)
  Receive Date: 20190218
  Receipt Date: 20190218
  Transmission Date: 20190418
  Serious: Yes (Death, Hospitalization)
  Sender: FDA-Public Use
  Company Number: FR-STRIDES ARCOLAB LIMITED-2019SP001388

PATIENT
  Age: 22 Year
  Sex: Female

DRUGS (1)
  1. IBUPROFEN. [Suspect]
     Active Substance: IBUPROFEN
     Indication: PRODUCT USED FOR UNKNOWN INDICATION
     Dosage: UNK
     Route: 065

REACTIONS (21)
  - Thrombophlebitis septic [Fatal]
  - Abscess [None]
  - Pulmonary infarction [None]
  - Fusobacterium infection [Fatal]
  - Multiple organ dysfunction syndrome [Fatal]
  - Lemierre syndrome [Fatal]
  - Respiratory distress [Unknown]
  - Hypotension [Unknown]
  - Dyspnoea [Unknown]
  - Septic shock [Fatal]
  - Necrosis [None]
  - Productive cough [Unknown]
  - Lactic acidosis [Unknown]
  - Sepsis [Fatal]
  - Coagulopathy [Fatal]
  - Influenza like illness [Unknown]
  - Acute kidney injury [Unknown]
  - Acute hepatic failure [Unknown]
  - Vaginal oedema [Unknown]
  - Anaemia [Unknown]
  - Asthenia [Unknown]
